FAERS Safety Report 16265015 (Version 1)
Quarter: 2019Q2

REPORT INFORMATION
  Report Type: Spontaneous
  Country: US (occurrence: US)
  Receive Date: 20190501
  Receipt Date: 20190501
  Transmission Date: 20190711
  Serious: Yes (Other)
  Sender: FDA-Public Use
  Company Number: None

PATIENT
  Age: 68 Year
  Sex: Female

DRUGS (21)
  1. FISH OIL [Concomitant]
     Active Substance: FISH OIL
  2. SPIRONOLACT [Concomitant]
     Active Substance: SPIRONOLACTONE
  3. ELQUIS [Concomitant]
  4. METFORMIN [Concomitant]
     Active Substance: METFORMIN HYDROCHLORIDE
  5. VENLAFAXINE [Concomitant]
     Active Substance: VENLAFAXINE HYDROCHLORIDE
  6. ACYCLOVIR. [Concomitant]
     Active Substance: ACYCLOVIR
  7. JANUVIA [Concomitant]
     Active Substance: SITAGLIPTIN PHOSPHATE
  8. RANITIDINE. [Concomitant]
     Active Substance: RANITIDINE
  9. ATROVASTATIN [Concomitant]
     Active Substance: ATORVASTATIN CALCIUM
  10. BREO ELIPPITA INH [Concomitant]
  11. MAGNESIUM [Concomitant]
     Active Substance: MAGNESIUM
  12. POTASSIUM [Concomitant]
     Active Substance: POTASSIUM
  13. NINLARO [Suspect]
     Active Substance: IXAZOMIB CITRATE
     Indication: PLASMA CELL MYELOMA
     Dosage: ?          OTHER FREQUENCY:QD 1,8,15 Q28 DAYS;?
     Route: 048
     Dates: start: 20190116
  14. COMBIVENT [Concomitant]
     Active Substance: ALBUTEROL SULFATE\IPRATROPIUM BROMIDE
  15. VITAMIN D3 [Concomitant]
     Active Substance: CHOLECALCIFEROL
  16. BUPROPION. [Concomitant]
     Active Substance: BUPROPION
  17. METROGEL [Concomitant]
     Active Substance: METRONIDAZOLE
  18. ENTRESTO [Concomitant]
     Active Substance: SACUBITRIL\VALSARTAN
  19. FUROSEMIDE. [Concomitant]
     Active Substance: FUROSEMIDE
  20. METOPROL TAR [Concomitant]
  21. PROCHLORPER [Concomitant]

REACTIONS (2)
  - Diarrhoea [None]
  - Vomiting [None]
